FAERS Safety Report 5776445-4 (Version None)
Quarter: 2008Q2

REPORT INFORMATION
  Report Type: 
  Country: None (occurrence: None)
  Receive Date: 20080617
  Receipt Date: 20080617
  Transmission Date: 20081010
  Serious: Yes (Life-Threatening, Hospitalization, Other)
  Sender: FDA-Public Use
  Company Number: None

PATIENT
  Sex: Female
  Weight: 74.8435 kg

DRUGS (1)
  1. DIGITEK MYLAN PHARMACEUTICALS [Suspect]
     Indication: CARDIAC DISORDER
     Dosage: 1.025

REACTIONS (6)
  - GAIT DISTURBANCE [None]
  - HEART RATE DECREASED [None]
  - MALAISE [None]
  - ORAL INTAKE REDUCED [None]
  - VIRAL INFECTION [None]
  - VOMITING [None]
